FAERS Safety Report 8560066-4 (Version None)
Quarter: 2012Q3

REPORT INFORMATION
  Report Type: 
  Country: None (occurrence: None)
  Receive Date: 20120723
  Receipt Date: 20120709
  Transmission Date: 20120928
  Serious: Yes (Death, Other)
  Sender: FDA-Public Use
  Company Number: 2011GB0425

PATIENT
  Age: 68 Year
  Sex: Male

DRUGS (1)
  1. ANAKINRA (ANAKINRA) [Suspect]
     Indication: RHEUMATOID ARTHRITIS
     Dosage: 100 MG (100 MG, 1 IN 1 D)
     Route: 058
     Dates: start: 20021106, end: 20030315

REACTIONS (2)
  - RESPIRATORY FAILURE [None]
  - BRONCHOLITHIASIS [None]
